FAERS Safety Report 7039207-6 (Version None)
Quarter: 2010Q4

REPORT INFORMATION
  Report Type: 
  Country: None (occurrence: None)
  Receive Date: 20101012
  Receipt Date: 20101007
  Transmission Date: 20110411
  Serious: Yes (Life-Threatening)
  Sender: FDA-Public Use
  Company Number: IN-SANOFI-AVENTIS-2010SA061112

PATIENT
  Age: 45 Year
  Sex: Female
  Weight: 90 kg

DRUGS (2)
  1. DOCETAXEL [Suspect]
     Indication: BREAST CANCER
     Route: 041
  2. ADRIAMYCIN PFS [Concomitant]
     Dosage: ONCE IN 2 DAYS FOR 6 WEEKS
     Route: 042

REACTIONS (4)
  - CARDIOMYOPATHY [None]
  - COUGH [None]
  - DYSPNOEA [None]
  - EJECTION FRACTION DECREASED [None]
